FAERS Safety Report 14089183 (Version 1)
Quarter: 2017Q4

REPORT INFORMATION
  Report Type: Spontaneous
  Country: RU (occurrence: RU)
  Receive Date: 20171013
  Receipt Date: 20171013
  Transmission Date: 20180321
  Serious: Yes (Other)
  Sender: FDA-Public Use
  Company Number: RU-ABBVIE-17P-251-2131380-00

PATIENT
  Age: 14 Year
  Sex: Female

DRUGS (1)
  1. VALPROIC ACID. [Suspect]
     Active Substance: VALPROIC ACID
     Indication: EPILEPSY
     Route: 048
     Dates: start: 20150412, end: 20170215

REACTIONS (4)
  - Drug ineffective [Unknown]
  - Dyspepsia [Unknown]
  - Cognitive disorder [Unknown]
  - Epilepsy [Unknown]

NARRATIVE: CASE EVENT DATE: 20150612
